FAERS Safety Report 8236774-1 (Version None)
Quarter: 2012Q1

REPORT INFORMATION
  Report Type: 
  Country: None (occurrence: None)
  Receive Date: 20120327
  Receipt Date: 20120316
  Transmission Date: 20120608
  Serious: Yes (Other)
  Sender: FDA-Public Use
  Company Number: US-JNJFOC-20120308466

PATIENT

DRUGS (2)
  1. REMICADE [Suspect]
     Indication: PRODUCT USED FOR UNKNOWN INDICATION
     Route: 042
     Dates: start: 20060911
  2. REMICADE [Suspect]
     Route: 042
     Dates: start: 20100201

REACTIONS (2)
  - NEOPLASM MALIGNANT [None]
  - BREAST CANCER [None]
